FAERS Safety Report 6344801-1 (Version None)
Quarter: 2009Q3

REPORT INFORMATION
  Report Type: 
  Country: None (occurrence: None)
  Receive Date: 20090904
  Receipt Date: 20090824
  Transmission Date: 20100115
  Serious: Yes (Hospitalization, Other)
  Sender: FDA-Public Use
  Company Number: 230059J09USA

PATIENT
  Age: 38 Year
  Sex: Male

DRUGS (3)
  1. REBIF [Suspect]
     Indication: MULTIPLE SCLEROSIS
     Dosage: 22 MCG, 3 IN 1 WEEKS, SUBCUTANEOUS
     Route: 058
     Dates: start: 20050712
  2. OXCARBAZEPINE [Concomitant]
  3. LEVETIRACETAM [Concomitant]

REACTIONS (6)
  - BRAIN NEOPLASM MALIGNANT [None]
  - CONVULSION [None]
  - DISEASE RECURRENCE [None]
  - DRUG DOSE OMISSION [None]
  - INCISION SITE PAIN [None]
  - OLIGODENDROGLIOMA [None]
